FAERS Safety Report 18907010 (Version 1)
Quarter: 2021Q1

REPORT INFORMATION
  Report Type: Spontaneous
  Country: US (occurrence: US)
  Receive Date: 20210217
  Receipt Date: 20210217
  Transmission Date: 20210420
  Serious: Yes (Hospitalization, Other)
  Sender: FDA-Public Use
  Company Number: US-NOVEN PHARMACEUTICALS, INC.-2020US009299

PATIENT
  Sex: Male
  Weight: 49.43 kg

DRUGS (4)
  1. DAYTRANA [Suspect]
     Active Substance: METHYLPHENIDATE
     Indication: BEHAVIOUR DISORDER
  2. DIVALPROEX [Concomitant]
     Active Substance: DIVALPROEX SODIUM
     Indication: EMOTIONAL DISORDER
  3. DIVALPROEX [Concomitant]
     Active Substance: DIVALPROEX SODIUM
     Indication: ABNORMAL BEHAVIOUR
     Dosage: UNK, TWICE DAILY (MORNING AND NIGHT)
     Route: 048
  4. DAYTRANA [Suspect]
     Active Substance: METHYLPHENIDATE
     Indication: ATTENTION DEFICIT HYPERACTIVITY DISORDER
     Dosage: 20 MG/ 9 HOURS
     Route: 062
     Dates: start: 202003

REACTIONS (8)
  - Therapeutic product ineffective [Unknown]
  - Device difficult to use [Recovered/Resolved]
  - Product adhesion issue [Unknown]
  - Depression [Unknown]
  - Device breakage [Unknown]
  - Device adhesion issue [Unknown]
  - Device issue [Unknown]
  - Product administration error [Unknown]

NARRATIVE: CASE EVENT DATE: 2020
